FAERS Safety Report 8603973-6 (Version None)
Quarter: 2012Q3

REPORT INFORMATION
  Report Type: 
  Country: None (occurrence: None)
  Receive Date: 20120820
  Receipt Date: 20120809
  Transmission Date: 20120928
  Serious: Yes (Hospitalization, Other)
  Sender: FDA-Public Use
  Company Number: US-BIOGENIDEC-2012BI030317

PATIENT
  Sex: Female

DRUGS (2)
  1. AVONEX [Suspect]
     Route: 030
     Dates: start: 20120501, end: 20120801
  2. AVONEX [Suspect]
     Indication: MULTIPLE SCLEROSIS
     Route: 030

REACTIONS (10)
  - COGNITIVE DISORDER [None]
  - INJECTION SITE REACTION [None]
  - LOSS OF CONSCIOUSNESS [None]
  - EPILEPSY [None]
  - INJECTION SITE SWELLING [None]
  - INFLUENZA LIKE ILLNESS [None]
  - CELLULITIS [None]
  - VASCULAR RUPTURE [None]
  - OEDEMA [None]
  - OEDEMA PERIPHERAL [None]
